FAERS Safety Report 16096517 (Version 1)
Quarter: 2019Q1

REPORT INFORMATION
  Report Type: Spontaneous
  Country: US (occurrence: US)
  Receive Date: 20190320
  Receipt Date: 20190320
  Transmission Date: 20190418
  Serious: No
  Sender: FDA-Public Use
  Company Number: US-SUNOVION-2019SUN001102

PATIENT
  Sex: Female
  Weight: 53.52 kg

DRUGS (2)
  1. GABAPENTIN ACTAVIS [Concomitant]
     Active Substance: GABAPENTIN
     Route: 065
  2. LATUDA [Suspect]
     Active Substance: LURASIDONE HYDROCHLORIDE
     Dosage: UNK
     Route: 048

REACTIONS (3)
  - Abdominal distension [Unknown]
  - Depression [Unknown]
  - Weight increased [Recovering/Resolving]
